FAERS Safety Report 6429454-6 (Version None)
Quarter: 2009Q4

REPORT INFORMATION
  Report Type: 
  Country: None (occurrence: None)
  Receive Date: 20091102
  Receipt Date: 20091021
  Transmission Date: 20100525
  Serious: Yes (Disabling)
  Sender: FDA-Public Use
  Company Number: JPI-P-008873

PATIENT
  Age: 60 Year
  Sex: Male
  Weight: 63.5036 kg

DRUGS (3)
  1. XYREM [Suspect]
     Indication: NARCOLEPSY
     Dosage: 4.5 GM (2.25 MG, 2 IN 1 D), ORAL; 9 GM (4.5 GM, 2 IN 1 D), ORAL
     Route: 048
     Dates: start: 20081101, end: 20090801
  2. MODAFINIL [Concomitant]
  3. AMPHETAMINE, DEXTROAMPHETAMINE MIXED SALTS [Concomitant]

REACTIONS (6)
  - ANGER [None]
  - COGNITIVE DISORDER [None]
  - GAIT DISTURBANCE [None]
  - IMPAIRED WORK ABILITY [None]
  - MOOD ALTERED [None]
  - NEUROLOGICAL DECOMPENSATION [None]
